FAERS Safety Report 5079339-5 (Version None)
Quarter: 2006Q3

REPORT INFORMATION
  Report Type: 
  Country: None (occurrence: None)
  Receive Date: 20060814
  Receipt Date: 20060523
  Transmission Date: 20061208
  Serious: Yes (Other)
  Sender: FDA-Public Use
  Company Number: PHFR2006GB01798

PATIENT
  Age: 75 Year
  Sex: Male

DRUGS (5)
  1. ZOMETA [Suspect]
     Indication: METASTASES TO BONE
     Dosage: 4 MG/DAY
     Route: 042
     Dates: start: 20031125, end: 20050510
  2. ACETAMINOPHEN [Concomitant]
     Indication: PAIN
     Dosage: 4G/DAY
     Route: 048
     Dates: start: 20050718
  3. AROMASIN [Concomitant]
     Indication: BREAST CANCER
     Dosage: 25 MG/DAY
     Route: 048
  4. INSULIN [Concomitant]
     Indication: DIABETES MELLITUS
     Route: 048
  5. PANTOPRAZOLE SODIUM [Concomitant]
     Dosage: 20 MG/DAY
     Route: 048
     Dates: start: 20050718

REACTIONS (2)
  - OSTEONECROSIS [None]
  - WOUND DEBRIDEMENT [None]
